FAERS Safety Report 7617442-3 (Version None)
Quarter: 2011Q3

REPORT INFORMATION
  Report Type: 
  Country: None (occurrence: None)
  Receive Date: 20110718
  Receipt Date: 20110712
  Transmission Date: 20111222
  Serious: No
  Sender: FDA-Public Use
  Company Number: US-PFIZER INC-2011157516

PATIENT
  Sex: Male
  Weight: 99.32 kg

DRUGS (6)
  1. IBUPROFEN (ADVIL) [Suspect]
     Indication: PAIN
     Dosage: 220 MG, 2X/DAY
     Route: 048
     Dates: start: 20110701
  2. LISINOPRIL [Concomitant]
     Indication: HYPERTENSION
     Dosage: 20MG, EVERY MORNING AND10MG EVERY NIGHT
     Route: 065
  3. ZOCOR [Concomitant]
     Indication: BLOOD CHOLESTEROL ABNORMAL
     Dosage: 10 MG, DAILY
     Route: 065
  4. METOPROLOL [Concomitant]
     Indication: HEART RATE ABNORMAL
     Dosage: 50MG, EVERY MORNING, 75MG, AT NIGHT
     Route: 065
  5. BACTRIM DS [Concomitant]
     Indication: PROSTATE CANCER
     Dosage: 800/160,DAILY
     Route: 065
  6. ACETYLSALICYLIC ACID [Concomitant]
     Indication: ANTICOAGULANT THERAPY
     Dosage: 325 MG, DAILY
     Route: 065

REACTIONS (2)
  - JOINT SWELLING [None]
  - OEDEMA PERIPHERAL [None]
